FAERS Safety Report 21343091 (Version 12)
Quarter: 2023Q4

REPORT INFORMATION
  Report Type: Spontaneous
  Country: US (occurrence: US)
  Receive Date: 20220916
  Receipt Date: 20231221
  Transmission Date: 20240110
  Serious: No
  Sender: FDA-Public Use
  Company Number: US-PFIZER INC-PV202200065025

PATIENT
  Age: 74 Year
  Sex: Female
  Weight: 46.712 kg

DRUGS (3)
  1. IBRANCE [Suspect]
     Active Substance: PALBOCICLIB
     Indication: Breast cancer female
     Dosage: ONCE DAILY FOR 14 DAYS ON, FOLLOWED BY 14 DAYS OFF
     Route: 048
     Dates: start: 20221206, end: 20221219
  2. IBRANCE [Suspect]
     Active Substance: PALBOCICLIB
     Dosage: ONCE DAILY FOR 14 DAYS ON, FOLLOWED BY 14 DAYS OFF
     Route: 048
  3. LETROZOLE [Concomitant]
     Active Substance: LETROZOLE
     Dosage: UNK
     Dates: start: 20221206, end: 20221219

REACTIONS (3)
  - Malaise [Recovered/Resolved]
  - Dyspnoea exertional [Recovered/Resolved]
  - Off label use [Unknown]

NARRATIVE: CASE EVENT DATE: 20221206
